FAERS Safety Report 4535562-7 (Version None)
Quarter: 2004Q4

REPORT INFORMATION
  Report Type: 
  Country: None (occurrence: None)
  Receive Date: 20041214
  Receipt Date: 20040920
  Transmission Date: 20050328
  Serious: Yes (Other)
  Sender: FDA-Public Use
  Company Number: 2004237110US

PATIENT
  Age: 41 Year
  Sex: Female

DRUGS (1)
  1. BEXTRA [Suspect]
     Indication: PELVIC PAIN
     Dosage: ORAL
     Route: 048
     Dates: start: 20040901

REACTIONS (1)
  - HYPERTENSION [None]
